FAERS Safety Report 17540876 (Version 1)
Quarter: 2020Q1

REPORT INFORMATION
  Report Type: Spontaneous
  Country: US (occurrence: US)
  Receive Date: 20200313
  Receipt Date: 20200313
  Transmission Date: 20200409
  Serious: Yes (Other)
  Sender: FDA-Public Use
  Company Number: US-TARO-2020TAR00120

PATIENT

DRUGS (5)
  1. LAMOTRIGINE TABLETS 100 MG [Suspect]
     Active Substance: LAMOTRIGINE
     Indication: DEPRESSION
  2. LAMOTRIGINE TABLETS 100 MG [Suspect]
     Active Substance: LAMOTRIGINE
     Indication: ANXIETY
     Dosage: QD, (2 AND A QUARTER TABLETS) [ONE OF THEM BEING TARO]
     Route: 048
     Dates: start: 20191217
  3. ZONISAMIDE. [Concomitant]
     Active Substance: ZONISAMIDE
     Indication: PRODUCT USED FOR UNKNOWN INDICATION
     Dosage: QD (AT NIGHT, WITH AMBIEN, INDOMETHECIN)
     Route: 065
  4. AMBIEN [Concomitant]
     Active Substance: ZOLPIDEM TARTRATE
     Indication: PRODUCT USED FOR UNKNOWN INDICATION
     Dosage: QD (AT NIGHT WITH INDOMETHECIN, ZONISAMIDE)
     Route: 065
  5. INDOMETHECIN [Concomitant]
     Indication: PRODUCT USED FOR UNKNOWN INDICATION
     Dosage: QD (AT NIGHT WITH AMBIEN, ZONISAMIDE)
     Route: 065

REACTIONS (6)
  - Seizure [Recovered/Resolved]
  - Suicidal ideation [Recovered/Resolved]
  - Product odour abnormal [Unknown]
  - Malaise [Recovered/Resolved]
  - Tongue disorder [Recovered/Resolved]
  - Palpitations [Recovered/Resolved]
